FAERS Safety Report 4543393-7 (Version None)
Quarter: 2004Q4

REPORT INFORMATION
  Report Type: 
  Country: None (occurrence: None)
  Receive Date: 20041230
  Receipt Date: 20041230
  Transmission Date: 20050328
  Serious: Yes (Disabling, Other)
  Sender: FDA-Public Use
  Company Number: None

PATIENT
  Sex: Male
  Weight: 117.9352 kg

DRUGS (3)
  1. PREDNISONE TAB [Suspect]
     Indication: CHRONIC SINUSITIS
     Dosage: ORAL
     Route: 048
     Dates: start: 20030929, end: 20031009
  2. DEXAMETHASONE [Suspect]
     Indication: CHRONIC SINUSITIS
     Dosage: ORAL
     Route: 048
     Dates: start: 20031023, end: 20031102
  3. TRAZODONE HCL [Concomitant]

REACTIONS (3)
  - ARTHRALGIA [None]
  - ASEPTIC NECROSIS BONE [None]
  - FEAR [None]
